FAERS Safety Report 12411083 (Version 3)
Quarter: 2016Q3

REPORT INFORMATION
  Report Type: Report from Study
  Country: JP (occurrence: JP)
  Receive Date: 20160527
  Receipt Date: 20160714
  Transmission Date: 20161109
  Serious: Yes (Other)
  Sender: FDA-Public Use
  Company Number: JP-BAXALTA-2016BLT003558

PATIENT
  Age: 10 Month
  Sex: Male

DRUGS (1)
  1. RECOMBINATE [Suspect]
     Active Substance: ANTIHEMOPHILIC FACTOR, HUMAN RECOMBINANT
     Indication: FACTOR VIII DEFICIENCY
     Dosage: 200 IU, 1X A DAY
     Route: 065

REACTIONS (2)
  - Factor VIII inhibition [Recovered/Resolved]
  - Anti factor VIII antibody increased [Recovered/Resolved]
